FAERS Safety Report 4753114-0 (Version None)
Quarter: 2005Q3

REPORT INFORMATION
  Report Type: 
  Country: None (occurrence: None)
  Receive Date: 20050826
  Receipt Date: 20050309
  Transmission Date: 20060218
  Serious: Yes (Life-Threatening, Hospitalization, Disabling)
  Sender: FDA-Public Use
  Company Number: US-MERCK-0503USA01716

PATIENT
  Age: 55 Year
  Sex: Male
  Weight: 84 kg

DRUGS (15)
  1. KLONOPIN [Concomitant]
     Indication: MULTIPLE SCLEROSIS
     Route: 065
     Dates: start: 19940101
  2. VIOXX [Suspect]
     Indication: PAIN
     Route: 048
     Dates: start: 19990501, end: 20040930
  3. VIOXX [Suspect]
     Route: 048
     Dates: start: 19990501, end: 20040930
  4. VIOXX [Suspect]
     Indication: EXTRAPYRAMIDAL DISORDER
     Route: 048
     Dates: start: 19990501, end: 20040930
  5. VIOXX [Suspect]
     Route: 048
     Dates: start: 19990501, end: 20040930
  6. BACLOFEN [Concomitant]
     Route: 065
  7. ANTIVERT [Concomitant]
     Route: 065
  8. NEXIUM [Concomitant]
     Route: 065
  9. AVONEX [Concomitant]
     Route: 065
  10. DITROPAN [Concomitant]
     Route: 065
  11. OXYBUTIN [Concomitant]
     Route: 065
  12. TYLENOL [Concomitant]
     Route: 065
     Dates: start: 19980101
  13. BEXTRA [Concomitant]
     Route: 065
     Dates: start: 20030101
  14. ALTACE [Concomitant]
     Indication: CARDIAC DISORDER
     Route: 065
     Dates: start: 20030101
  15. LOPRESSOR [Concomitant]
     Indication: CARDIAC DISORDER
     Route: 065
     Dates: start: 20030101

REACTIONS (6)
  - BLOOD CHOLESTEROL INCREASED [None]
  - CHEST PAIN [None]
  - CORONARY ARTERY DISEASE [None]
  - MYOCARDIAL INFARCTION [None]
  - PAIN [None]
  - STENT PLACEMENT [None]
